FAERS Safety Report 6241648-1 (Version None)
Quarter: 2009Q2

REPORT INFORMATION
  Report Type: 
  Country: None (occurrence: None)
  Receive Date: 20090623
  Receipt Date: 20060423
  Transmission Date: 20091009
  Serious: Yes (Hospitalization)
  Sender: FDA-Public Use
  Company Number: DE-ROCHE-447556

PATIENT
  Sex: Female

DRUGS (13)
  1. DACLIZUMAB [Suspect]
     Route: 042
     Dates: start: 20031221
  2. DACLIZUMAB [Suspect]
     Dosage: WEEK-2 VISIT
     Route: 042
     Dates: start: 20040105
  3. DACLIZUMAB [Suspect]
     Route: 042
     Dates: start: 20040119
  4. MYCOPHENOLATE MOFETIL [Suspect]
     Route: 048
     Dates: start: 20031221, end: 20040226
  5. TACROLIMUS [Suspect]
     Route: 048
     Dates: start: 20040318
  6. CYCLOSPORINE [Suspect]
     Route: 048
     Dates: start: 20031221
  7. CYCLOSPORINE [Suspect]
     Route: 048
     Dates: start: 20040226, end: 20040318
  8. PREDNISOLONE [Suspect]
     Route: 042
     Dates: start: 20031221
  9. ENALAPRIL [Concomitant]
     Route: 048
     Dates: start: 20031227
  10. GANCICLOVIR [Concomitant]
     Route: 042
     Dates: start: 20040121, end: 20040202
  11. PRAVASTATIN [Concomitant]
     Route: 048
     Dates: start: 20031226
  12. PRAVASTATIN [Concomitant]
     Route: 048
     Dates: start: 20040223
  13. PREDNISOLONE [Suspect]
     Route: 048
     Dates: start: 20031224

REACTIONS (1)
  - CYTOMEGALOVIRUS INFECTION [None]
